FAERS Safety Report 10192579 (Version 3)
Quarter: 2014Q2

REPORT INFORMATION
  Report Type: Spontaneous
  Country: JP (occurrence: JP)
  Receive Date: 20140523
  Receipt Date: 20140624
  Transmission Date: 20141212
  Serious: Yes (Hospitalization)
  Sender: FDA-Public Use
  Company Number: JP-OTSUKA-US-2014-10994

PATIENT
  Age: 50 Year
  Sex: Female

DRUGS (11)
  1. SAMSCA [Suspect]
     Indication: ASCITES
     Dosage: 3.75 MG MILLIGRAM(S), QD
     Route: 048
     Dates: start: 20140115
  2. SAMSCA [Suspect]
     Dosage: 7.5 MG MILLIGRAM(S), QD
     Route: 048
     Dates: start: 20131128, end: 20140114
  3. FERROUS CITRATE [Concomitant]
     Indication: ANAEMIA
     Dosage: 50 MG MILLIGRAM(S), QD
     Route: 048
     Dates: start: 20060615, end: 20131215
  4. ASCORBIC ACID [Concomitant]
     Indication: ANAEMIA
     Dosage: 1 UNK, QD
     Route: 048
     Dates: start: 20060615, end: 20131215
  5. AMLODIPINE BESILATE [Concomitant]
     Indication: HYPERTENSION
     Dosage: 5 MG MILLIGRAM(S), QD
     Route: 048
     Dates: start: 20110615, end: 20140310
  6. CANDESARTAN CILEXETIL [Concomitant]
     Indication: HYPERTENSION
     Dosage: 8 MG MILLIGRAM(S), QD
     Route: 048
     Dates: start: 20110615
  7. MAGNESIUM OXIDE [Concomitant]
     Indication: CONSTIPATION
     Dosage: 330 MG MILLIGRAM(S), TID
     Route: 048
     Dates: start: 20131128
  8. TORASEMIDE [Concomitant]
     Indication: ASCITES
     Dosage: 8 MG MILLIGRAM(S), QD
     Route: 048
     Dates: start: 20131128, end: 20140114
  9. TORASEMIDE [Concomitant]
     Dosage: 4 MG MILLIGRAM(S), QD
     Route: 048
     Dates: start: 20140115
  10. CILNIDIPINE [Concomitant]
     Indication: HYPERTENSION
     Dosage: 10 MG MILLIGRAM(S), QD
     Route: 048
     Dates: start: 20140311
  11. AMINO ACID [Concomitant]
     Indication: HYPOALBUMINAEMIA
     Dosage: 4.15 G GRAM(S), TID
     Route: 048
     Dates: start: 20131128

REACTIONS (1)
  - Abdominal hernia [Unknown]
